FAERS Safety Report 16080282 (Version 2)
Quarter: 2019Q3

REPORT INFORMATION
  Report Type: Spontaneous
  Country: US (occurrence: US)
  Receive Date: 20190315
  Receipt Date: 20190904
  Transmission Date: 20191004
  Serious: No
  Sender: FDA-Public Use
  Company Number: US-PTC THERAPEUTICS, INC.-US-2018PTC001280

PATIENT
  Sex: Male

DRUGS (1)
  1. EMFLAZA [Suspect]
     Active Substance: DEFLAZACORT
     Indication: MUSCULAR DYSTROPHY
     Dosage: 30 MG, QD
     Route: 048
     Dates: start: 20171109

REACTIONS (1)
  - Swelling face [Unknown]
